FAERS Safety Report 6696011-6 (Version None)
Quarter: 2010Q2

REPORT INFORMATION
  Report Type: 
  Country: None (occurrence: None)
  Receive Date: 20100423
  Receipt Date: 20100423
  Transmission Date: 20101027
  Serious: Yes (Hospitalization)
  Sender: FDA-Public Use
  Company Number: None

PATIENT
  Sex: Female
  Weight: 63.6 kg

DRUGS (1)
  1. EFFIENT [Suspect]
     Indication: STENT PLACEMENT
     Dosage: 10 MG DAILY PO
     Route: 048
     Dates: start: 20100130

REACTIONS (2)
  - GASTRIC ULCER HAEMORRHAGE [None]
  - HYPOTENSION [None]
